FAERS Safety Report 7148918-3 (Version None)
Quarter: 2010Q4

REPORT INFORMATION
  Report Type: 
  Country: None (occurrence: None)
  Receive Date: 20101209
  Receipt Date: 20101202
  Transmission Date: 20110411
  Serious: Yes (Hospitalization, Other)
  Sender: FDA-Public Use
  Company Number: A0883564A

PATIENT
  Age: 66 Year
  Sex: Female
  Weight: 52.3 kg

DRUGS (6)
  1. TYKERB [Suspect]
     Dosage: 1250MG UNKNOWN
     Route: 048
     Dates: start: 20100601, end: 20101015
  2. XELODA [Concomitant]
     Indication: BREAST CANCER
     Route: 048
     Dates: start: 20100601, end: 20101015
  3. ZOMETA [Concomitant]
     Indication: BREAST CANCER
     Route: 042
     Dates: end: 20101018
  4. PEPCID [Concomitant]
     Route: 048
  5. VICODIN [Concomitant]
     Indication: PAIN
     Route: 048
  6. ZOCOR [Concomitant]
     Route: 048

REACTIONS (1)
  - PERICARDIAL EFFUSION [None]
